FAERS Safety Report 23801620 (Version 1)
Quarter: 2024Q2

REPORT INFORMATION
  Report Type: Spontaneous
  Country: US (occurrence: US)
  Receive Date: 20240430
  Receipt Date: 20240430
  Transmission Date: 20240715
  Serious: Yes (Other)
  Sender: FDA-Public Use
  Company Number: US-BAXTER-2024BAX017469

PATIENT
  Age: 74 Year
  Sex: Female

DRUGS (2)
  1. CLINDAMYCIN [Suspect]
     Active Substance: CLINDAMYCIN
     Indication: Eye infection toxoplasmal
     Dosage: 1.0 MG IN 0.1ML IN THE LEFT EYE
  2. PREDNISOLONE ACETATE [Concomitant]
     Active Substance: PREDNISOLONE ACETATE
     Indication: Eye infection toxoplasmal
     Dosage: 1% FOUR TIMES DAILY IN THE LEFT EYE
     Route: 061

REACTIONS (2)
  - Retinopathy [Unknown]
  - Vitreous opacities [Unknown]
